FAERS Safety Report 7407817-X (Version None)
Quarter: 2011Q2

REPORT INFORMATION
  Report Type: 
  Country: None (occurrence: None)
  Receive Date: 20110412
  Receipt Date: 20110331
  Transmission Date: 20111010
  Serious: Yes (Other)
  Sender: FDA-Public Use
  Company Number: PHHY2011CA18614

PATIENT
  Sex: Male

DRUGS (2)
  1. EXJADE [Suspect]
     Indication: MYELODYSPLASTIC SYNDROME
     Dosage: UNK
     Route: 048
  2. INSULIN [Concomitant]
     Dosage: UNK

REACTIONS (3)
  - HAEMORRHAGE [None]
  - ABDOMINAL DISCOMFORT [None]
  - HAEMOGLOBIN DECREASED [None]
